FAERS Safety Report 15010547 (Version 1)
Quarter: 2018Q2

REPORT INFORMATION
  Report Type: Report from Study
  Country: ZA (occurrence: ZA)
  Receive Date: 20180614
  Receipt Date: 20180614
  Transmission Date: 20180711
  Serious: Yes (Death)
  Sender: FDA-Public Use
  Company Number: ZA-SA-2018SA148032

PATIENT
  Age: 72 Year
  Sex: Male
  Weight: 83.9 kg

DRUGS (15)
  1. BLINDED RED YEAST RICE [Suspect]
     Active Substance: DIETARY SUPPLEMENT
     Indication: HYPERCHOLESTEROLAEMIA
     Dosage: 1 ML, QOW
     Route: 058
     Dates: start: 20171206
  2. BLINDED ALIROCUMAB [Suspect]
     Active Substance: ALIROCUMAB
     Indication: HYPERCHOLESTEROLAEMIA
     Dosage: 1 ML, QOW
     Route: 058
     Dates: start: 20171206
  3. BLINDED ALIROCUMAB [Suspect]
     Active Substance: ALIROCUMAB
     Indication: HYPERCHOLESTEROLAEMIA
     Dosage: 1 ML, QOW
     Route: 058
     Dates: start: 20171206
  4. BLINDED ALIROCUMAB [Suspect]
     Active Substance: ALIROCUMAB
     Indication: HYPERCHOLESTEROLAEMIA
     Dosage: 1 ML, QOW
     Route: 058
     Dates: start: 20171206
  5. FOXAIR [Concomitant]
     Active Substance: FLUTICASONE PROPIONATE\SALMETEROL XINAFOATE
     Indication: CHRONIC OBSTRUCTIVE PULMONARY DISEASE
     Dosage: 1 DF, BID
     Route: 055
     Dates: start: 201706
  6. CLOPIDOGREL [Concomitant]
     Active Substance: CLOPIDOGREL BISULFATE
     Indication: MYOCARDIAL ISCHAEMIA
     Dosage: 75 MG, QD
     Route: 048
     Dates: start: 201705
  7. SPIRONOLACTONE. [Concomitant]
     Active Substance: SPIRONOLACTONE
     Indication: HYPERTENSION
     Dosage: 25 MG, QD
     Route: 048
     Dates: start: 2017
  8. BLINDED FENOFIBRIC ACID [Suspect]
     Active Substance: FENOFIBRIC ACID
     Indication: HYPERCHOLESTEROLAEMIA
     Dosage: 1 ML, QOW
     Route: 058
     Dates: start: 20171206
  9. GLUCOPHAGE [Concomitant]
     Active Substance: METFORMIN HYDROCHLORIDE
     Indication: TYPE 2 DIABETES MELLITUS
     Dosage: 1 G, BID
     Route: 048
     Dates: start: 2012
  10. DIAGLUCIDE [Concomitant]
     Active Substance: GLICLAZIDE
     Indication: TYPE 2 DIABETES MELLITUS
     Dosage: 1 DF, QD
     Route: 048
     Dates: start: 2017
  11. BLINDED NO STUDY DRUG GIVEN [Suspect]
     Active Substance: INVESTIGATIONAL PRODUCT
     Indication: HYPERCHOLESTEROLAEMIA
     Dosage: 1 ML, QOW
     Route: 058
     Dates: start: 20171206
  12. BLINDED PLACEBO [Suspect]
     Active Substance: INVESTIGATIONAL PRODUCT
     Indication: HYPERCHOLESTEROLAEMIA
     Dosage: 1 ML, QOW
     Route: 058
     Dates: start: 20171206
  13. ATORVASTATIN [Suspect]
     Active Substance: ATORVASTATIN
     Dosage: 80 MG, QD
     Route: 048
     Dates: start: 201705
  14. ASPIRIN (E.C.) [Concomitant]
     Active Substance: ASPIRIN
     Indication: MYOCARDIAL ISCHAEMIA
     Dosage: 100 MG, QD
     Route: 048
     Dates: start: 201705
  15. BLINDED ALIROCUMAB [Suspect]
     Active Substance: ALIROCUMAB
     Indication: HYPERCHOLESTEROLAEMIA
     Dosage: 1 ML, QOW
     Route: 058
     Dates: start: 20171206

REACTIONS (1)
  - Aortic aneurysm [None]

NARRATIVE: CASE EVENT DATE: 20180528
